FAERS Safety Report 4427146-6 (Version None)
Quarter: 2004Q3

REPORT INFORMATION
  Report Type: 
  Country: None (occurrence: None)
  Receive Date: 20040726
  Receipt Date: 20040423
  Transmission Date: 20050211
  Serious: Yes (Other)
  Sender: FDA-Public Use
  Company Number: USA040465888

PATIENT
  Age: 69 Year
  Sex: Female

DRUGS (6)
  1. EVISTA [Suspect]
     Dates: start: 20030301
  2. FORTEO [Suspect]
     Dates: start: 20040325
  3. ACTONEL [Concomitant]
  4. CELEBREX [Concomitant]
  5. CALCIUM [Concomitant]
  6. MULTI-VITAMINS [Concomitant]

REACTIONS (5)
  - DYSGEUSIA [None]
  - HERPES SIMPLEX [None]
  - HYPOTRICHOSIS [None]
  - MUSCLE CRAMP [None]
  - SPINAL FRACTURE [None]
